FAERS Safety Report 8474008-3 (Version None)
Quarter: 2012Q2

REPORT INFORMATION
  Report Type: 
  Country: None (occurrence: None)
  Receive Date: 20120628
  Receipt Date: 20120612
  Transmission Date: 20120825
  Serious: Yes (Other)
  Sender: FDA-Public Use
  Company Number: US-MYLANLABS-2012S1006247

PATIENT
  Age: 30 Year
  Sex: Male

DRUGS (6)
  1. LITHIUM CARBONATE [Concomitant]
  2. CLOZAPINE [Suspect]
     Indication: SCHIZOPHRENIA
     Dates: end: 20120601
  3. ZOLOFT [Concomitant]
  4. CLOZAPINE [Suspect]
     Dates: start: 20120603
  5. DEPAKOTE [Concomitant]
  6. CRESTOR [Concomitant]

REACTIONS (2)
  - GRANULOCYTOPENIA [None]
  - LEUKOPENIA [None]
